FAERS Safety Report 10332545 (Version 2)
Quarter: 2014Q3

REPORT INFORMATION
  Report Type: Spontaneous
  Country: US (occurrence: US)
  Receive Date: 20140722
  Receipt Date: 20140722
  Transmission Date: 20150326
  Serious: No
  Sender: FDA-Public Use
  Company Number: US-UNITED THERAPEUTICS-UTC-040543

PATIENT
  Sex: Male
  Weight: 70.3 kg

DRUGS (3)
  1. ADCIRCA [Concomitant]
     Active Substance: TADALAFIL
  2. REMODULIN [Suspect]
     Active Substance: TREPROSTINIL
     Dosage: 0.034 UG/KG/MIN
     Route: 058
     Dates: start: 20110527
  3. XARELTO [Concomitant]
     Active Substance: RIVAROXABAN

REACTIONS (4)
  - Drug hypersensitivity [Unknown]
  - Infusion site pain [Unknown]
  - Rash [Unknown]
  - Infusion site erythema [Unknown]
